FAERS Safety Report 16301299 (Version 2)
Quarter: 2019Q2

REPORT INFORMATION
  Report Type: Report from Study
  Country: NL (occurrence: NL)
  Receive Date: 20190510
  Receipt Date: 20190612
  Transmission Date: 20190711
  Serious: Yes (Death, Hospitalization, Other)
  Sender: FDA-Public Use
  Company Number: NL-BRISTOL-MYERS SQUIBB COMPANY-BMS-2019-041903

PATIENT
  Age: 70 Year
  Sex: Male

DRUGS (2)
  1. NIVOLUMAB [Suspect]
     Active Substance: NIVOLUMAB
     Indication: GASTRIC CANCER
     Dosage: 480 MILLIGRAM
     Route: 042
     Dates: start: 20180327
  2. BMS-986205-04 [Suspect]
     Active Substance: LINRODOSTAT MESYLATE
     Indication: GASTRIC CANCER
     Dosage: 100 MILLIGRAM
     Route: 048
     Dates: start: 20180501

REACTIONS (2)
  - Sepsis [Not Recovered/Not Resolved]
  - Tumour perforation [Fatal]

NARRATIVE: CASE EVENT DATE: 20190419
